FAERS Safety Report 7459454-9 (Version None)
Quarter: 2011Q2

REPORT INFORMATION
  Report Type: 
  Country: None (occurrence: None)
  Receive Date: 20110505
  Receipt Date: 20091207
  Transmission Date: 20111010
  Serious: No
  Sender: FDA-Public Use
  Company Number: US-PFIZER INC-2009275733

PATIENT
  Sex: Male

DRUGS (3)
  1. ASPIRIN [Suspect]
     Dosage: UNK
  2. VERAPAMIL HCL [Suspect]
     Dosage: UNK
  3. METFORMIN HCL [Suspect]
     Dosage: 500 MG, 3X/DAY

REACTIONS (1)
  - BLOOD GLUCOSE INCREASED [None]
